FAERS Safety Report 7398088-1 (Version None)
Quarter: 2011Q2

REPORT INFORMATION
  Report Type: 
  Country: None (occurrence: None)
  Receive Date: 20110406
  Receipt Date: 20110328
  Transmission Date: 20111010
  Serious: Yes (Death)
  Sender: FDA-Public Use
  Company Number: FR-ELI_LILLY_AND_COMPANY-FR201103007571

PATIENT
  Sex: Female

DRUGS (3)
  1. ALIMTA [Suspect]
     Indication: NON-SMALL CELL LUNG CANCER
     Dosage: 500 MG/M2, 3/W
     Route: 042
     Dates: start: 20101201
  2. AVASTIN [Concomitant]
     Dosage: 378 MG, PER INFUSION
     Route: 042
  3. CISPLATIN [Concomitant]
     Indication: NON-SMALL CELL LUNG CANCER
     Dosage: 137 MG, 3/W
     Route: 042
     Dates: start: 20101201

REACTIONS (6)
  - RENAL FAILURE ACUTE [None]
  - FEBRILE NEUTROPENIA [None]
  - THROMBOCYTOPENIA [None]
  - EPISTAXIS [None]
  - STAPHYLOCOCCAL INFECTION [None]
  - METRORRHAGIA [None]
